FAERS Safety Report 7746045-5 (Version None)
Quarter: 2011Q3

REPORT INFORMATION
  Report Type: 
  Country: None (occurrence: None)
  Receive Date: 20110913
  Receipt Date: 20110831
  Transmission Date: 20111222
  Serious: No
  Sender: FDA-Public Use
  Company Number: BR-US-EMD SERONO, INC.-7066834

PATIENT
  Sex: Male

DRUGS (5)
  1. OMOPRAMELI [Concomitant]
     Route: 048
  2. REBIF [Suspect]
     Indication: RELAPSING-REMITTING MULTIPLE SCLEROSIS
     Dates: start: 20070301
  3. AMITRIPTYLINE HCL [Concomitant]
     Route: 048
  4. SERTRALINE HYDROCHLORIDE [Concomitant]
     Route: 048
  5. ALPRAZOLAM [Concomitant]
     Route: 048

REACTIONS (9)
  - SKIN NECROSIS [None]
  - INJECTION SITE NODULE [None]
  - DYSPHAGIA [None]
  - SCAR [None]
  - DERMATITIS ALLERGIC [None]
  - URINARY TRACT INFECTION [None]
  - ABDOMINAL DISTENSION [None]
  - DRY SKIN [None]
  - INJECTION SITE HAEMATOMA [None]
